FAERS Safety Report 7751882-7 (Version None)
Quarter: 2011Q3

REPORT INFORMATION
  Report Type: 
  Country: None (occurrence: None)
  Receive Date: 20110914
  Receipt Date: 20110914
  Transmission Date: 20111222
  Serious: Yes (Other)
  Sender: FDA-Public Use
  Company Number: None

PATIENT
  Sex: Female

DRUGS (1)
  1. REBIF [Suspect]
     Indication: MULTIPLE SCLEROSIS
     Dosage: 44MCG T/W SQ
     Route: 058
     Dates: start: 20110518, end: 20110907

REACTIONS (4)
  - INJECTION SITE REACTION [None]
  - HYPERHIDROSIS [None]
  - DIARRHOEA [None]
  - INJECTION SITE ERYTHEMA [None]
